FAERS Safety Report 25334920 (Version 1)
Quarter: 2025Q2

REPORT INFORMATION
  Report Type: Report from Study
  Country: BE (occurrence: BE)
  Receive Date: 20250520
  Receipt Date: 20250520
  Transmission Date: 20250717
  Serious: Yes (Death)
  Sender: ABBVIE
  Company Number: BE-ABBVIE-6290137

PATIENT
  Age: 82 Year
  Sex: Male
  Weight: 65 kg

DRUGS (5)
  1. FOSCARBIDOPA\FOSLEVODOPA [Suspect]
     Active Substance: FOSCARBIDOPA\FOSLEVODOPA
     Indication: Parkinson^s disease
     Route: 050
     Dates: start: 20240521
  2. FOSCARBIDOPA\FOSLEVODOPA [Suspect]
     Active Substance: FOSCARBIDOPA\FOSLEVODOPA
  3. RIVOTRIL [Concomitant]
     Active Substance: CLONAZEPAM
     Indication: Product used for unknown indication
  4. XADAGO [Concomitant]
     Active Substance: SAFINAMIDE MESYLATE
     Indication: Parkinson^s disease
  5. STALEVO [Concomitant]
     Active Substance: CARBIDOPA\ENTACAPONE\LEVODOPA
     Indication: Parkinson^s disease

REACTIONS (1)
  - Death [Fatal]

NARRATIVE: CASE EVENT DATE: 20250501
